FAERS Safety Report 21731189 (Version 1)
Quarter: 2022Q4

REPORT INFORMATION
  Report Type: Report from Study
  Country: US (occurrence: US)
  Receive Date: 20221215
  Receipt Date: 20221215
  Transmission Date: 20230113
  Serious: No
  Sender: FDA-Public Use
  Company Number: US-ABBVIE-4220741

PATIENT
  Age: 36 Year
  Sex: Female

DRUGS (6)
  1. HUMIRA [Suspect]
     Active Substance: ADALIMUMAB
     Indication: Colitis ulcerative
     Dosage: 3RD DOSE
     Route: 058
     Dates: start: 20221130
  2. HUMIRA [Suspect]
     Active Substance: ADALIMUMAB
     Dosage: 1ST DOSE
     Route: 058
     Dates: start: 20221128, end: 20221128
  3. HUMIRA [Suspect]
     Active Substance: ADALIMUMAB
     Dosage: 2ND DOSE
     Route: 058
     Dates: start: 20221129, end: 20221129
  4. MODERNA COVID-19 VACCINE [Concomitant]
     Active Substance: ELASOMERAN
     Indication: COVID-19 immunisation
     Dosage: ONCE
     Route: 030
     Dates: start: 20210313, end: 20210313
  5. MODERNA COVID-19 VACCINE [Concomitant]
     Active Substance: ELASOMERAN
     Indication: COVID-19 immunisation
     Dosage: ONCE
     Route: 030
     Dates: start: 20210410, end: 20210410
  6. MODERNA COVID-19 VACCINE [Concomitant]
     Active Substance: ELASOMERAN
     Indication: COVID-19 immunisation
     Dosage: ONCE
     Route: 030
     Dates: start: 20221025, end: 20221025

REACTIONS (3)
  - Injection site rash [Recovered/Resolved]
  - Injection site urticaria [Unknown]
  - Injection site papule [Unknown]

NARRATIVE: CASE EVENT DATE: 20221101
